FAERS Safety Report 11985481 (Version 2)
Quarter: 2017Q1

REPORT INFORMATION
  Report Type: Spontaneous
  Country: US (occurrence: US)
  Receive Date: 20160201
  Receipt Date: 20170113
  Transmission Date: 20170428
  Serious: Yes (Other)
  Sender: FDA-Public Use
  Company Number: US-ELI_LILLY_AND_COMPANY-US201601009696

PATIENT
  Sex: Male

DRUGS (2)
  1. CYMBALTA [Suspect]
     Active Substance: DULOXETINE HYDROCHLORIDE
     Indication: DEPRESSION
     Dosage: 90 MG, QD
     Dates: end: 20140224
  2. CYMBALTA [Suspect]
     Active Substance: DULOXETINE HYDROCHLORIDE
     Indication: PAIN
     Dosage: 60 MG, QD
     Route: 065

REACTIONS (14)
  - Withdrawal syndrome [Unknown]
  - Insomnia [Unknown]
  - Paraesthesia [Unknown]
  - Mood swings [Unknown]
  - Constipation [Unknown]
  - Agitation [Unknown]
  - Vertigo [Unknown]
  - Affect lability [Unknown]
  - Irritability [Unknown]
  - Dizziness [Unknown]
  - Nausea [Unknown]
  - Nightmare [Unknown]
  - Sleep disorder [Unknown]
  - Anxiety [Unknown]
